FAERS Safety Report 14661756 (Version 2)
Quarter: 2018Q1

REPORT INFORMATION
  Report Type: Spontaneous
  Country: US (occurrence: US)
  Receive Date: 20180320
  Receipt Date: 20180328
  Transmission Date: 20180509
  Serious: No
  Sender: FDA-Public Use
  Company Number: US-009507513-1803USA008189

PATIENT
  Sex: Female

DRUGS (1)
  1. NEXPLANON [Suspect]
     Active Substance: ETONOGESTREL
     Indication: CONTRACEPTION
     Dosage: ONE ROD EVERY THREE YEARS
     Route: 059
     Dates: start: 201610, end: 20180315

REACTIONS (4)
  - Complication of device removal [Recovered/Resolved]
  - Amenorrhoea [Unknown]
  - Device kink [Recovered/Resolved]
  - Device breakage [Recovered/Resolved]
